FAERS Safety Report 8144840-4 (Version None)
Quarter: 2012Q1

REPORT INFORMATION
  Report Type: 
  Country: None (occurrence: None)
  Receive Date: 20120217
  Receipt Date: 20120209
  Transmission Date: 20120608
  Serious: Yes (Death, Hospitalization)
  Sender: FDA-Public Use
  Company Number: US-GLAXOSMITHKLINE-A0886890A

PATIENT
  Age: 78 Year
  Sex: Female
  Weight: 100 kg

DRUGS (5)
  1. VASOTEC [Concomitant]
  2. PRAVACHOL [Concomitant]
  3. METOPROLOL TARTRATE [Concomitant]
  4. AVANDIA [Suspect]
     Indication: DIABETES MELLITUS
     Dosage: 4MG PER DAY
     Route: 048
  5. INSULIN [Concomitant]

REACTIONS (9)
  - MYOCARDIAL INFARCTION [None]
  - ACUTE MYOCARDIAL INFARCTION [None]
  - BRAIN STEM INFARCTION [None]
  - HYPOTENSION [None]
  - SEPSIS [None]
  - RENAL FAILURE ACUTE [None]
  - DEATH [None]
  - CEREBROVASCULAR ACCIDENT [None]
  - RESPIRATORY FAILURE [None]
